FAERS Safety Report 9094920 (Version 1)
Quarter: 2013Q1

REPORT INFORMATION
  Report Type: Spontaneous
  Country: US (occurrence: None)
  Receive Date: 20130214
  Receipt Date: 20130214
  Transmission Date: 20140127
  Serious: Yes (Hospitalization, Disabling, Other)
  Sender: FDA-Public Use
  Company Number: None

PATIENT
  Age: 27 Year
  Sex: Female
  Weight: 54.43 kg

DRUGS (1)
  1. SUBOXONE 8MG/2 [Suspect]
     Indication: DRUG DEPENDENCE
     Dosage: ONCE PER DAY
     Route: 060
     Dates: start: 20120701, end: 20130203

REACTIONS (10)
  - Abdominal pain [None]
  - Abdominal pain upper [None]
  - Asthenia [None]
  - Bedridden [None]
  - Hysterectomy [None]
  - General physical health deterioration [None]
  - Nausea [None]
  - Vomiting [None]
  - Weight decreased [None]
  - Feeling of despair [None]
